FAERS Safety Report 18325927 (Version 2)
Quarter: 2020Q4

REPORT INFORMATION
  Report Type: Spontaneous
  Country: US (occurrence: US)
  Receive Date: 20200929
  Receipt Date: 20201028
  Transmission Date: 20210113
  Serious: No
  Sender: FDA-Public Use
  Company Number: US-PFIZER INC-2020374853

PATIENT
  Age: 59 Year

DRUGS (2)
  1. VIAGRA [Suspect]
     Active Substance: SILDENAFIL CITRATE
     Dosage: UNK
  2. XANAX [Suspect]
     Active Substance: ALPRAZOLAM
     Dosage: UNK

REACTIONS (5)
  - Gait disturbance [Unknown]
  - Oedema peripheral [Unknown]
  - Somnolence [Unknown]
  - Dysstasia [Unknown]
  - Impaired work ability [Unknown]

NARRATIVE: CASE EVENT DATE: 2020
